FAERS Safety Report 8966107 (Version 3)
Quarter: 2013Q4

REPORT INFORMATION
  Report Type: Spontaneous
  Country: US (occurrence: None)
  Receive Date: 20121205
  Receipt Date: 20131212
  Transmission Date: 20140711
  Serious: Yes (Hospitalization)
  Sender: FDA-Public Use
  Company Number: 003-094

PATIENT
  Age: 29 Year
  Sex: Female

DRUGS (1)
  1. CROFAB [Suspect]
     Indication: SNAKE BITE
     Dosage: NDC #  50633-110-122 ? ?64  VIALS  TOTAL
     Dates: start: 20120915, end: 20120922

REACTIONS (9)
  - Thrombocytopenia [None]
  - Petechiae [None]
  - Pyrexia [None]
  - Pain [None]
  - Local swelling [None]
  - Ecchymosis [None]
  - Contusion [None]
  - Local swelling [None]
  - Necrosis [None]
